FAERS Safety Report 7391434 (Version 11)
Quarter: 2021Q4

REPORT INFORMATION
  Report Type: Spontaneous
  Country: GB (occurrence: GB)
  Receive Date: 20100518
  Receipt Date: 20211020
  Transmission Date: 20220304
  Serious: Yes (Hospitalization, Disabling, Other)
  Sender: FDA-Public Use
  Company Number: GB-BETA-22668/10L

PATIENT
  Age: 70 Year
  Sex: Male

DRUGS (14)
  1. CIPROFLOXACIN [Interacting]
     Active Substance: CIPROFLOXACIN
     Indication: Periorbital cellulitis
     Route: 048
  2. METRONIDAZOLE [Interacting]
     Active Substance: METRONIDAZOLE
     Indication: Periorbital cellulitis
     Route: 048
  3. CLOPIDOGREL [Interacting]
     Active Substance: CLOPIDOGREL BISULFATE
     Indication: Chest pain
     Dosage: 300 MG (DAILY DOSE), ONCE,
  4. CLOPIDOGREL [Interacting]
     Active Substance: CLOPIDOGREL BISULFATE
     Indication: Chest pain
     Dosage: 75 MG (DAILY DOSE), ,
  5. ASPIRIN [Suspect]
     Active Substance: ASPIRIN
     Indication: Chest pain
     Dosage: 300 MG (DAILY DOSE), ONCE,
  6. ASPIRIN [Suspect]
     Active Substance: ASPIRIN
     Indication: Antiplatelet therapy
     Dosage: 75 MG (DAILY DOSE), ,
  7. ASPIRIN [Suspect]
     Active Substance: ASPIRIN
     Indication: Chest pain
     Dosage: 75 MG, UNK
     Route: 065
  8. ASPIRIN [Suspect]
     Active Substance: ASPIRIN
     Indication: Chest pain
     Dosage: 300 MG, UNK
     Route: 065
  9. ERYTHROMYCIN [Interacting]
     Active Substance: ERYTHROMYCIN
     Indication: Periorbital cellulitis
     Dosage: 250 MG, QID
     Route: 048
  10. WARFARIN [Interacting]
     Active Substance: WARFARIN
     Indication: Pulmonary embolism
  11. MEROPENEM [Interacting]
     Active Substance: MEROPENEM
     Indication: Periorbital cellulitis
     Route: 042
  12. TEICOPLANIN [Interacting]
     Active Substance: TEICOPLANIN
     Indication: Periorbital cellulitis
     Route: 030
  13. VITAMIN K [Concomitant]
     Active Substance: PHYTONADIONE
     Indication: Product used for unknown indication
     Route: 065
  14. VITAMIN K [Concomitant]
     Active Substance: PHYTONADIONE
     Indication: Hyphaema

REACTIONS (13)
  - Hyphaema [Recovered/Resolved with Sequelae]
  - Intraocular pressure increased [Recovered/Resolved with Sequelae]
  - Eye pain [Recovered/Resolved with Sequelae]
  - Headache [Recovered/Resolved with Sequelae]
  - Pyrexia [Recovered/Resolved with Sequelae]
  - Nausea [Recovered/Resolved with Sequelae]
  - Decreased appetite [Recovered/Resolved with Sequelae]
  - International normalised ratio increased [Recovered/Resolved]
  - Visual acuity reduced [Unknown]
  - Coagulation time prolonged [Recovered/Resolved]
  - Drug interaction [Not Recovered/Not Resolved]
  - Drug interaction [Recovered/Resolved]
  - Off label use [Unknown]
